FAERS Safety Report 7962002-8 (Version None)
Quarter: 2011Q4

REPORT INFORMATION
  Report Type: 
  Country: None (occurrence: None)
  Receive Date: 20111205
  Receipt Date: 20111205
  Transmission Date: 20120403
  Serious: Yes (Hospitalization)
  Sender: FDA-Public Use
  Company Number: None

PATIENT
  Age: 66 Year
  Sex: Male
  Weight: 66.1 kg

DRUGS (1)
  1. HYDROCHLOROTHIAZIDE [Suspect]
     Indication: HYPERTENSION
     Dosage: 25 MG EVERY DAY PO
     Route: 048
     Dates: start: 20090813, end: 20111011

REACTIONS (7)
  - LOSS OF CONSCIOUSNESS [None]
  - FALL [None]
  - TREMOR [None]
  - HYPONATRAEMIA [None]
  - DEPRESSION [None]
  - ATAXIA [None]
  - COUGH [None]
